FAERS Safety Report 7064957-5 (Version None)
Quarter: 2010Q4

REPORT INFORMATION
  Report Type: 
  Country: None (occurrence: None)
  Receive Date: 20101027
  Receipt Date: 19931231
  Transmission Date: 20110411
  Serious: Yes (Death, Hospitalization)
  Sender: FDA-Public Use
  Company Number: FR-ROCHE-930501529001

PATIENT
  Sex: Male

DRUGS (1)
  1. ROCEPHIN [Suspect]
     Route: 030

REACTIONS (2)
  - LARYNGEAL CANCER [None]
  - PSEUDOMEMBRANOUS COLITIS [None]
